FAERS Safety Report 16331639 (Version 1)
Quarter: 2019Q2

REPORT INFORMATION
  Report Type: Spontaneous
  Country: US (occurrence: US)
  Receive Date: 20190412
  Receipt Date: 20190412
  Transmission Date: 20190711
  Serious: No
  Sender: FDA-Public Use
  Company Number: None

PATIENT
  Age: 53 Year
  Sex: Female

DRUGS (1)
  1. COSENTYX [Suspect]
     Active Substance: SECUKINUMAB

REACTIONS (4)
  - Joint swelling [None]
  - Paraesthesia [None]
  - Euphoric mood [None]
  - Nausea [None]

NARRATIVE: CASE EVENT DATE: 20190114
